FAERS Safety Report 25008343 (Version 1)
Quarter: 2025Q1

REPORT INFORMATION
  Report Type: Spontaneous
  Country: FR (occurrence: None)
  Receive Date: 20250225
  Receipt Date: 20250225
  Transmission Date: 20250409
  Serious: Yes (Life-Threatening)
  Sender: ORION
  Company Number: None

PATIENT
  Age: 78 Year
  Sex: Female
  Weight: 48 kg

DRUGS (7)
  1. METHOTREXATE [Suspect]
     Active Substance: METHOTREXATE
     Indication: Polyarthritis
     Dates: end: 20240930
  2. METHOTREXATE [Suspect]
     Active Substance: METHOTREXATE
     Dates: start: 20240930, end: 20241015
  3. ELIQUIS [Concomitant]
     Active Substance: APIXABAN
  4. ESCITALOPRAM [Concomitant]
     Active Substance: ESCITALOPRAM OXALATE
  5. FLECAINIDE [Concomitant]
     Active Substance: FLECAINIDE
  6. GABAPENTIN [Concomitant]
     Active Substance: GABAPENTIN
  7. ZOPICLONE [Concomitant]
     Active Substance: ZOPICLONE

REACTIONS (9)
  - Overdose [Recovered/Resolved]
  - Product dispensing error [Recovered/Resolved]
  - Wrong schedule [Recovered/Resolved]
  - Drug eruption [Recovering/Resolving]
  - Mucosal inflammation [Recovering/Resolving]
  - Cheilitis [Recovering/Resolving]
  - Pancytopenia [Recovered/Resolved]
  - Inappropriate schedule of product administration [Unknown]
  - Product use in unapproved indication [Unknown]

NARRATIVE: CASE EVENT DATE: 20240930
